FAERS Safety Report 23219169 (Version 2)
Quarter: 2024Q1

REPORT INFORMATION
  Report Type: Spontaneous
  Country: US (occurrence: US)
  Receive Date: 20231122
  Receipt Date: 20240321
  Transmission Date: 20240410
  Serious: No
  Sender: FDA-Public Use
  Company Number: US-Calliditas-2023CAL01501

PATIENT
  Age: 46 Year
  Sex: Female
  Weight: 69 kg

DRUGS (1)
  1. TARPEYO [Suspect]
     Active Substance: BUDESONIDE
     Indication: IgA nephropathy
     Route: 048
     Dates: start: 20231031

REACTIONS (3)
  - Hypertension [Unknown]
  - Blood pressure increased [Unknown]
  - Cushingoid [Unknown]
